FAERS Safety Report 13644695 (Version 1)
Quarter: 2017Q2

REPORT INFORMATION
  Report Type: Spontaneous
  Country: US (occurrence: US)
  Receive Date: 20170612
  Receipt Date: 20170612
  Transmission Date: 20170830
  Serious: No
  Sender: FDA-Public Use
  Company Number: US-ROCHE-1302047

PATIENT
  Sex: Male

DRUGS (1)
  1. XELODA [Suspect]
     Active Substance: CAPECITABINE
     Indication: RECTAL CANCER
     Dosage: FOUR TABLETS BY MOUTH TWICE DAILY FOR 14 DAYS ON 7 DAYS OFF
     Route: 048
     Dates: start: 20131004

REACTIONS (2)
  - Diarrhoea [Unknown]
  - Burning sensation [Unknown]
